FAERS Safety Report 25321550 (Version 3)
Quarter: 2025Q2

REPORT INFORMATION
  Report Type: Report from Study
  Country: US (occurrence: US)
  Receive Date: 20250516
  Receipt Date: 20250613
  Transmission Date: 20250716
  Serious: Yes (Hospitalization)
  Sender: ABBVIE
  Company Number: US-ABBVIE-6282887

PATIENT
  Age: 60 Year
  Sex: Male

DRUGS (2)
  1. VYALEV [Suspect]
     Active Substance: FOSCARBIDOPA\FOSLEVODOPA
     Indication: Parkinson^s disease
     Route: 058
     Dates: start: 20250307
  2. HEPARIN [Suspect]
     Active Substance: HEPARIN SODIUM
     Indication: Product used for unknown indication
     Route: 065

REACTIONS (8)
  - Pneumonia [Recovering/Resolving]
  - Influenza [Recovering/Resolving]
  - Injection site bruising [Unknown]
  - Injection site pain [Recovered/Resolved]
  - Parkinson^s disease [Unknown]
  - Fall [Unknown]
  - Hallucination, visual [Unknown]
  - Device issue [Unknown]

NARRATIVE: CASE EVENT DATE: 20250101
